FAERS Safety Report 8134444-1 (Version None)
Quarter: 2012Q1

REPORT INFORMATION
  Report Type: 
  Country: None (occurrence: None)
  Receive Date: 20120214
  Receipt Date: 20120214
  Transmission Date: 20120608
  Serious: Yes (Hospitalization, Disabling)
  Sender: FDA-Public Use
  Company Number: None

PATIENT
  Age: 60 Year
  Sex: Female
  Weight: 61.1 kg

DRUGS (1)
  1. REVLIMID [Suspect]
     Indication: MULTIPLE MYELOMA
     Dosage: 25 MG
     Route: 048
     Dates: start: 20120104, end: 20120104

REACTIONS (3)
  - ABDOMINAL DISTENSION [None]
  - COLITIS ISCHAEMIC [None]
  - INTESTINAL INFARCTION [None]
